FAERS Safety Report 23453783 (Version 5)
Quarter: 2025Q1

REPORT INFORMATION
  Report Type: Report from Study
  Country: US (occurrence: US)
  Receive Date: 20240129
  Receipt Date: 20250218
  Transmission Date: 20250409
  Serious: Yes (Other)
  Sender: NOVARTIS
  Company Number: US-002147023-NVSC2024US017205

PATIENT
  Age: 39 Year
  Sex: Female

DRUGS (2)
  1. KESIMPTA [Suspect]
     Active Substance: OFATUMUMAB
     Indication: Multiple sclerosis
     Route: 065
     Dates: start: 20230717
  2. KESIMPTA [Suspect]
     Active Substance: OFATUMUMAB
     Route: 058
     Dates: start: 20230727

REACTIONS (3)
  - Breast cancer [Unknown]
  - Pain [Unknown]
  - Psoriasis [Unknown]

NARRATIVE: CASE EVENT DATE: 20230727
